FAERS Safety Report 9620255 (Version 1)
Quarter: 2013Q4

REPORT INFORMATION
  Report Type: Spontaneous
  Country: US (occurrence: US)
  Receive Date: 20131014
  Receipt Date: 20131014
  Transmission Date: 20140711
  Serious: No
  Sender: FDA-Public Use
  Company Number: US-ALLERGAN-1308020US

PATIENT
  Age: 84 Year
  Sex: Female

DRUGS (2)
  1. ALPHAGAN P [Suspect]
     Indication: INTRAOCULAR PRESSURE INCREASED
     Dosage: 2 GTT, BID
     Route: 047
  2. AGGRENOX [Concomitant]
     Indication: BLOOD PRESSURE
     Dosage: UNK
     Dates: start: 2005

REACTIONS (1)
  - Therapeutic response decreased [Unknown]
